FAERS Safety Report 12095083 (Version 1)
Quarter: 2016Q1

REPORT INFORMATION
  Report Type: Spontaneous
  Country: US (occurrence: US)
  Receive Date: 20160219
  Receipt Date: 20160219
  Transmission Date: 20160526
  Serious: No
  Sender: FDA-Public Use
  Company Number: CHPA2016US002310

PATIENT
  Age: 39 Year
  Sex: Female

DRUGS (2)
  1. CORTISONE [Suspect]
     Active Substance: CORTISONE\HYDROCORTISONE
     Indication: TENOSYNOVITIS STENOSANS
     Route: 065
  2. VOLTAREN [Suspect]
     Active Substance: DICLOFENAC SODIUM
     Indication: INFLAMMATION
     Dosage: 2 G, UNK
     Route: 061
     Dates: start: 20160202, end: 20160206

REACTIONS (4)
  - Contusion [Recovered/Resolved]
  - Wrong technique in product usage process [Unknown]
  - Drug ineffective for unapproved indication [Unknown]
  - Application site rash [Recovered/Resolved]

NARRATIVE: CASE EVENT DATE: 201602
